FAERS Safety Report 6445987-0 (Version None)
Quarter: 2009Q4

REPORT INFORMATION
  Report Type: 
  Country: None (occurrence: None)
  Receive Date: 20091119
  Receipt Date: 20090529
  Transmission Date: 20100525
  Serious: No
  Sender: FDA-Public Use
  Company Number: A0787411A

PATIENT
  Age: 49 Year
  Sex: Male

DRUGS (1)
  1. WELLBUTRIN SR [Suspect]
     Indication: DEPRESSION
     Dosage: 150MG TWICE PER DAY
     Route: 048
     Dates: start: 20090403

REACTIONS (4)
  - ANGER [None]
  - DRUG INEFFECTIVE [None]
  - TENSION [None]
  - TREMOR [None]
